FAERS Safety Report 9074823 (Version 1)
Quarter: 2013Q1

REPORT INFORMATION
  Report Type: Spontaneous
  Country: US (occurrence: US)
  Receive Date: 20130129
  Receipt Date: 20130129
  Transmission Date: 20140127
  Serious: Yes (Hospitalization)
  Sender: FDA-Public Use
  Company Number: PHHY2013US007584

PATIENT
  Age: 70 Year
  Sex: Male
  Weight: 52 kg

DRUGS (4)
  1. GLYBURIDE AND METFORMIN [Suspect]
     Dosage: 1 DF, BID
  2. HYDROCHLOROTHIAZIDE [Concomitant]
     Dosage: 25 MG, DAILY
  3. LOSARTAN [Concomitant]
     Dosage: 50 MG, DAILY
  4. FUROSEMIDE [Concomitant]
     Indication: OEDEMA PERIPHERAL
     Dosage: 40 MG, QD

REACTIONS (9)
  - Renal failure acute [Unknown]
  - Tachypnoea [Unknown]
  - Lactic acidosis [Recovered/Resolved]
  - Nausea [Unknown]
  - Vomiting [Unknown]
  - Anuria [Unknown]
  - Malaise [Unknown]
  - Blood pressure systolic increased [None]
  - Continuous haemodiafiltration [None]
